FAERS Safety Report 6309187-7 (Version None)
Quarter: 2009Q3

REPORT INFORMATION
  Report Type: 
  Country: None (occurrence: None)
  Receive Date: 20090814
  Receipt Date: 20090701
  Transmission Date: 20100115
  Serious: No
  Sender: FDA-Public Use
  Company Number: A0795911A

PATIENT
  Sex: Male

DRUGS (5)
  1. COREG CR [Suspect]
     Indication: CARDIAC FAILURE
     Dosage: 10MG PER DAY
  2. PLAVIX [Concomitant]
  3. ASPIRIN [Concomitant]
  4. LOVAZA [Concomitant]
  5. UNKNOWN [Concomitant]

REACTIONS (1)
  - PRURITUS [None]
